FAERS Safety Report 13695452 (Version 2)
Quarter: 2017Q3

REPORT INFORMATION
  Report Type: Spontaneous
  Country: ES (occurrence: ES)
  Receive Date: 20170627
  Receipt Date: 20170919
  Transmission Date: 20171127
  Serious: Yes (Hospitalization, Disabling)
  Sender: FDA-Public Use
  Company Number: PHHY2017ES094604

PATIENT
  Sex: Female

DRUGS (1)
  1. COSENTYX [Suspect]
     Active Substance: SECUKINUMAB
     Indication: SPONDYLOARTHROPATHY
     Dosage: 300 MG, UNK
     Route: 065
     Dates: start: 20170425

REACTIONS (1)
  - Neurosensory hypoacusis [Not Recovered/Not Resolved]

NARRATIVE: CASE EVENT DATE: 20170522
